FAERS Safety Report 8320817-0 (Version None)
Quarter: 2012Q2

REPORT INFORMATION
  Report Type: 
  Country: None (occurrence: None)
  Receive Date: 20120430
  Receipt Date: 20120420
  Transmission Date: 20120825
  Serious: Yes (Life-Threatening, Other)
  Sender: FDA-Public Use
  Company Number: PHHY2012BR025299

PATIENT
  Sex: Male

DRUGS (5)
  1. AMIODARONE HYDROCHLORIDE [Concomitant]
     Indication: CARDIAC DISORDER
     Dosage: 1 DF, (1 TABLET DAILY)
     Route: 048
  2. ARADOIS H [Concomitant]
     Indication: HYPERTENSION
     Dosage: 1 DF, (1 TABLET DAILY)
     Route: 048
  3. FORMOTEROL FUMARATE [Suspect]
     Indication: EMPHYSEMA
     Dosage: 2 DF, (2 INHALATIONS DAILY)
  4. APRESOLINE [Concomitant]
     Indication: HYPERTENSION
     Dosage: 1 DF, (1 TABLET DAILY)
     Route: 048
  5. FLUTICASONE PROPIONATE/SALMETEROL [Suspect]

REACTIONS (5)
  - HYPERSENSITIVITY [None]
  - DRY THROAT [None]
  - FEELING ABNORMAL [None]
  - DYSPNOEA [None]
  - ASPHYXIA [None]
